FAERS Safety Report 11876041 (Version 1)
Quarter: 2015Q4

REPORT INFORMATION
  Report Type: Spontaneous
  Country: MY (occurrence: MY)
  Receive Date: 20151229
  Receipt Date: 20151229
  Transmission Date: 20160305
  Serious: Yes (Hospitalization, Other)
  Sender: FDA-Public Use
  Company Number: MY-BRISTOL-MYERS SQUIBB COMPANY-BMS-2015-090629

PATIENT
  Age: 27 Year
  Sex: Female

DRUGS (1)
  1. WARFARIN SODIUM. [Suspect]
     Active Substance: WARFARIN SODIUM
     Indication: ANTICOAGULANT THERAPY
     Route: 065

REACTIONS (5)
  - Peritoneal haemorrhage [Unknown]
  - Overdose [Unknown]
  - Ovarian cyst ruptured [Unknown]
  - Hypovolaemic shock [Unknown]
  - Haemoglobin decreased [Unknown]
